FAERS Safety Report 4815070-6 (Version None)
Quarter: 2005Q4

REPORT INFORMATION
  Report Type: 
  Country: None (occurrence: None)
  Receive Date: 20051027
  Receipt Date: 20051014
  Transmission Date: 20060501
  Serious: Yes (Hospitalization)
  Sender: FDA-Public Use
  Company Number: 2005143624

PATIENT
  Sex: Female

DRUGS (2)
  1. DETROL LA [Suspect]
     Indication: URINARY INCONTINENCE
     Dosage: TAKEN FOR YEARS
  2. OXYBUTYNIN [Suspect]
     Indication: URINARY INCONTINENCE

REACTIONS (6)
  - DRY MOUTH [None]
  - DYSURIA [None]
  - FATIGUE [None]
  - FOOT OPERATION [None]
  - SOMNOLENCE [None]
  - URINARY RETENTION [None]
